FAERS Safety Report 10469403 (Version 1)
Quarter: 2014Q3

REPORT INFORMATION
  Report Type: Spontaneous
  Country: US (occurrence: None)
  Receive Date: 20140919
  Receipt Date: 20140919
  Transmission Date: 20150326
  Serious: Yes (Other)
  Sender: FDA-Public Use
  Company Number: US-ZYDUS-005004

PATIENT
  Age: 63 Year
  Sex: Male

DRUGS (1)
  1. METFORMIN [Suspect]
     Active Substance: METFORMIN HYDROCHLORIDE
     Indication: DIABETES MELLITUS
     Dosage: 2.00 TIMES PER 1.0 DAYS

REACTIONS (7)
  - Renal tubular necrosis [None]
  - Hypothermia [None]
  - Metabolic acidosis [None]
  - Renal failure [None]
  - Lactic acidosis [None]
  - Tachycardia [None]
  - Haemodialysis [None]
